FAERS Safety Report 7684967-4 (Version None)
Quarter: 2011Q3

REPORT INFORMATION
  Report Type: 
  Country: None (occurrence: None)
  Receive Date: 20110816
  Receipt Date: 20110803
  Transmission Date: 20111222
  Serious: Yes (Hospitalization)
  Sender: FDA-Public Use
  Company Number: US-UCBSA-028518

PATIENT
  Sex: Male
  Weight: 61.96 kg

DRUGS (5)
  1. CIMZIA [Suspect]
     Indication: CROHN'S DISEASE
     Route: 058
     Dates: start: 20110215
  2. AZATHIOPRINE [Concomitant]
     Indication: CROHN'S DISEASE
     Route: 048
  3. PREDNISONE [Concomitant]
     Route: 048
  4. ERYTHROMYCIN [Concomitant]
     Indication: INFECTION
     Route: 048
  5. ENTOCORT EC [Concomitant]
     Route: 048

REACTIONS (1)
  - SEPSIS [None]
